FAERS Safety Report 4621014-2 (Version None)
Quarter: 2005Q1

REPORT INFORMATION
  Report Type: 
  Country: None (occurrence: None)
  Receive Date: 20050325
  Receipt Date: 20050314
  Transmission Date: 20050727
  Serious: Yes (Hospitalization)
  Sender: FDA-Public Use
  Company Number: CHNY2005GB00462

PATIENT
  Age: 1 Year
  Sex: Female

DRUGS (3)
  1. IBUPROFEN [Suspect]
     Indication: PYREXIA
     Dosage: 5 MG/KG, QD, ORAL
     Route: 048
  2. PARACETAMOL [Suspect]
     Indication: PYREXIA
     Dosage: 15 MG/KG, QD, ORAL
     Route: 048
  3. CEFUROXIME [Concomitant]

REACTIONS (2)
  - HYPOTHERMIA [None]
  - SEPSIS [None]
